FAERS Safety Report 4555019-7 (Version None)
Quarter: 2004Q4

REPORT INFORMATION
  Report Type: 
  Country: None (occurrence: None)
  Receive Date: 20041217
  Receipt Date: 20040826
  Transmission Date: 20050328
  Serious: No
  Sender: FDA-Public Use
  Company Number: 2004-BP-06152BP

PATIENT
  Age: 70 Year
  Sex: Female

DRUGS (5)
  1. SPIRIVA [Suspect]
     Dosage: 18 MCG (18 MCG, 1 IN 1 D), IH
     Route: 055
     Dates: start: 20040607, end: 20040709
  2. ADVAIR (SERETIDE MITE) [Concomitant]
  3. GUAIFENEX (ENTEX /OLD FORM/ ) [Concomitant]
  4. LANOXIN [Concomitant]
  5. SINGULAIR [Concomitant]

REACTIONS (1)
  - RASH GENERALISED [None]
